FAERS Safety Report 12277482 (Version 3)
Quarter: 2017Q2

REPORT INFORMATION
  Report Type: Spontaneous
  Country: US (occurrence: US)
  Receive Date: 20160418
  Receipt Date: 20170608
  Transmission Date: 20170830
  Serious: Yes (Hospitalization)
  Sender: FDA-Public Use
  Company Number: US-ACTELION-A-NJ2016-134643

PATIENT
  Age: 88 Year
  Sex: Female
  Weight: 69.84 kg

DRUGS (2)
  1. SILDENAFIL. [Concomitant]
     Active Substance: SILDENAFIL
  2. OPSUMIT [Suspect]
     Active Substance: MACITENTAN
     Indication: PULMONARY ARTERIAL HYPERTENSION
     Dosage: 10 MG, QD
     Route: 048
     Dates: start: 20160229

REACTIONS (8)
  - Pain [Unknown]
  - Intestinal obstruction [Unknown]
  - Back pain [Unknown]
  - Rash [Unknown]
  - Herpes zoster [Unknown]
  - Chest pain [Unknown]
  - Erythema [Unknown]
  - Blood pressure abnormal [Unknown]
